FAERS Safety Report 5491123-7 (Version None)
Quarter: 2007Q4

REPORT INFORMATION
  Report Type: 
  Country: None (occurrence: None)
  Receive Date: 20071019
  Receipt Date: 20071009
  Transmission Date: 20080405
  Serious: Yes (Hospitalization)
  Sender: FDA-Public Use
  Company Number: FR-PFIZER INC-2007077787

PATIENT
  Sex: Female
  Weight: 85 kg

DRUGS (10)
  1. LYRICA [Suspect]
     Indication: FIBROMYALGIA
     Route: 048
     Dates: start: 20060901, end: 20070626
  2. ANTIDEPRESSANTS [Concomitant]
  3. ANALGESICS [Concomitant]
  4. BROMAZEPAM [Concomitant]
     Route: 048
  5. FLUVOXAMINE MALEATE [Concomitant]
     Route: 048
  6. TETRAZEPAM [Concomitant]
     Route: 048
  7. TRAMADOL HCL [Concomitant]
     Route: 048
  8. ZOPICLONE [Concomitant]
     Route: 048
  9. OMEPRAZOLE [Concomitant]
     Route: 048
  10. TELMISARTAN [Concomitant]
     Route: 048

REACTIONS (2)
  - DIABETES MELLITUS INADEQUATE CONTROL [None]
  - WEIGHT INCREASED [None]
